FAERS Safety Report 19840953 (Version 2)
Quarter: 2021Q3

REPORT INFORMATION
  Report Type: Spontaneous
  Country: CA (occurrence: CA)
  Receive Date: 20210916
  Receipt Date: 20210927
  Transmission Date: 20211014
  Serious: Yes (Hospitalization)
  Sender: FDA-Public Use
  Company Number: CA-TEVA-2021-CA-1952541

PATIENT
  Age: 84 Year
  Sex: Male
  Weight: 83 kg

DRUGS (29)
  1. CIPROFLOXACIN. [Suspect]
     Active Substance: CIPROFLOXACIN
     Indication: DIABETIC FOOT
     Dosage: 1000 MILLIGRAM DAILY;
     Route: 048
  2. CIPROFLOXACIN. [Suspect]
     Active Substance: CIPROFLOXACIN
     Indication: BETA HAEMOLYTIC STREPTOCOCCAL INFECTION
  3. CLOXACILLIN [Suspect]
     Active Substance: CLOXACILLIN
     Indication: PSEUDOMONAS INFECTION
  4. RAMIPRIL. [Suspect]
     Active Substance: RAMIPRIL
     Indication: PRODUCT USED FOR UNKNOWN INDICATION
     Route: 065
  5. ERTAPENEM. [Suspect]
     Active Substance: ERTAPENEM SODIUM
     Indication: BETA HAEMOLYTIC STREPTOCOCCAL INFECTION
  6. MEROPENEM. [Concomitant]
     Active Substance: MEROPENEM
     Indication: DIABETIC FOOT INFECTION
     Dosage: 3 GRAM DAILY; ADMINISTERED EVERY 8 HOURS (INFUSED OVER 3 HOURS)
     Route: 041
  7. ERTAPENEM. [Suspect]
     Active Substance: ERTAPENEM SODIUM
     Indication: PSEUDOMONAS INFECTION
  8. CEFAZOLIN [Concomitant]
     Active Substance: CEFAZOLIN
     Indication: ANTIBIOTIC PROPHYLAXIS
     Dosage: 6000 MILLIGRAM DAILY; RECEIVED EVERY 8 HOURS FOR 24 HOURS
     Route: 065
  9. CLOXACILLIN [Suspect]
     Active Substance: CLOXACILLIN
     Indication: BETA HAEMOLYTIC STREPTOCOCCAL INFECTION
  10. CLOXACILLIN [Suspect]
     Active Substance: CLOXACILLIN
     Indication: STAPHYLOCOCCAL INFECTION
  11. CLOXACILLIN [Suspect]
     Active Substance: CLOXACILLIN
     Indication: DIABETIC FOOT
     Route: 048
  12. ONDANSETRON [Suspect]
     Active Substance: ONDANSETRON
     Indication: NAUSEA
     Route: 042
  13. ERTAPENEM. [Suspect]
     Active Substance: ERTAPENEM SODIUM
     Indication: DIABETIC FOOT
     Dosage: 1 GRAM DAILY;
     Route: 042
  14. FOSFOMYCIN [Suspect]
     Active Substance: FOSFOMYCIN
     Indication: PSEUDOMONAS INFECTION
  15. CEFTRIAXONE. [Concomitant]
     Active Substance: CEFTRIAXONE
     Indication: DIABETIC FOOT INFECTION
     Dosage: 2 GRAM DAILY;
     Route: 042
  16. CEFTRIAXONE. [Concomitant]
     Active Substance: CEFTRIAXONE
     Indication: ANTIBIOTIC THERAPY
  17. METRONIDAZOLE. [Concomitant]
     Active Substance: METRONIDAZOLE
     Indication: ANTIBIOTIC THERAPY
  18. METRONIDAZOLE. [Concomitant]
     Active Substance: METRONIDAZOLE
     Indication: EVIDENCE BASED TREATMENT
  19. MEROPENEM. [Concomitant]
     Active Substance: MEROPENEM
     Indication: PSEUDOMONAS INFECTION
  20. CIPROFLOXACIN. [Suspect]
     Active Substance: CIPROFLOXACIN
     Indication: STAPHYLOCOCCAL INFECTION
  21. ERTAPENEM. [Suspect]
     Active Substance: ERTAPENEM SODIUM
     Indication: STAPHYLOCOCCAL INFECTION
  22. CEFTOLOZANE/TAZOBACTAM [Suspect]
     Active Substance: CEFTOLOZANE SULFATE\TAZOBACTAM SODIUM
     Indication: DIABETIC FOOT INFECTION
     Dosage: 4.5 GRAM DAILY; ADMINISTERED EVERY 8 HOURS (INFUSED OVER 3 HOURS)
     Route: 041
  23. CEFTOLOZANE/TAZOBACTAM [Suspect]
     Active Substance: CEFTOLOZANE SULFATE\TAZOBACTAM SODIUM
     Indication: PSEUDOMONAS INFECTION
  24. METRONIDAZOLE. [Concomitant]
     Active Substance: METRONIDAZOLE
     Indication: DIABETIC FOOT INFECTION
     Dosage: 1000 MILLIGRAM DAILY;
     Route: 048
  25. GENTAMICIN. [Suspect]
     Active Substance: GENTAMICIN
     Indication: DIABETIC FOOT INFECTION
     Dosage: 160 MILLIGRAM DAILY;
     Route: 042
  26. GENTAMICIN. [Suspect]
     Active Substance: GENTAMICIN
     Indication: PSEUDOMONAS INFECTION
  27. CIPROFLOXACIN. [Suspect]
     Active Substance: CIPROFLOXACIN
     Indication: PSEUDOMONAS INFECTION
  28. FOSFOMYCIN [Suspect]
     Active Substance: FOSFOMYCIN
     Indication: DIABETIC FOOT INFECTION
     Dosage: 18 GRAM DAILY; ADMINISTERED THREE TIMES DAILY
     Route: 042
  29. CEFTRIAXONE. [Concomitant]
     Active Substance: CEFTRIAXONE
     Indication: EVIDENCE BASED TREATMENT

REACTIONS (6)
  - Vomiting [Recovered/Resolved]
  - Acute kidney injury [Recovering/Resolving]
  - Nausea [Recovered/Resolved]
  - Hypokalaemia [Recovered/Resolved]
  - Decreased appetite [Recovering/Resolving]
  - Drug ineffective [Unknown]
